FAERS Safety Report 14607261 (Version 4)
Quarter: 2018Q3

REPORT INFORMATION
  Report Type: Spontaneous
  Country: US (occurrence: US)
  Receive Date: 20180307
  Receipt Date: 20180704
  Transmission Date: 20181010
  Serious: No
  Sender: FDA-Public Use
  Company Number: US-PFIZER INC-2018090880

PATIENT
  Age: 11 Year
  Sex: Male
  Weight: 29 kg

DRUGS (1)
  1. GENOTROPIN MQ [Suspect]
     Active Substance: SOMATROPIN
     Indication: GROWTH HORMONE DEFICIENCY
     Dosage: 1.2 MG, DAILY
     Route: 058

REACTIONS (16)
  - Dark circles under eyes [Not Recovered/Not Resolved]
  - Injection site pain [Unknown]
  - Personality change [Unknown]
  - Weight decreased [Unknown]
  - Fatigue [Unknown]
  - Poor quality drug administered [Unknown]
  - Injection site rash [Unknown]
  - Device physical property issue [Unknown]
  - Abdominal pain upper [Unknown]
  - Pain [Unknown]
  - Device leakage [Unknown]
  - Rash [Unknown]
  - Withdrawal syndrome [Unknown]
  - Headache [Unknown]
  - Malaise [Unknown]
  - Diarrhoea [Unknown]

NARRATIVE: CASE EVENT DATE: 20180205
